FAERS Safety Report 25058777 (Version 1)
Quarter: 2025Q1

REPORT INFORMATION
  Report Type: Report from Study
  Country: US (occurrence: US)
  Receive Date: 20250310
  Receipt Date: 20250310
  Transmission Date: 20250408
  Serious: Yes (Other)
  Sender: BAUSCH AND LOMB
  Company Number: US-BAUSCHBL-2025BNL003956

PATIENT
  Sex: Male

DRUGS (1)
  1. MIEBO [Suspect]
     Active Substance: PERFLUOROHEXYLOCTANE
     Indication: Product used for unknown indication
     Route: 065

REACTIONS (5)
  - Glaucoma [Unknown]
  - Visual impairment [Unknown]
  - Product knowledge deficit [Unknown]
  - Product use issue [Unknown]
  - Product complaint [Unknown]
